FAERS Safety Report 20919963 (Version 1)
Quarter: 2022Q2

REPORT INFORMATION
  Report Type: Spontaneous
  Country: US (occurrence: None)
  Receive Date: 20220604
  Receipt Date: 20220604
  Transmission Date: 20220721
  Serious: No
  Sender: FDA-Public Use
  Company Number: None

PATIENT
  Age: 41 Year
  Sex: Female

DRUGS (1)
  1. TACROLIMUS [Suspect]
     Active Substance: TACROLIMUS
     Dosage: FREQUENCY : TWICE A DAY;?
     Route: 048
     Dates: start: 2018

REACTIONS (5)
  - Fatigue [None]
  - Anaemia [None]
  - Liver function test increased [None]
  - Blood creatinine increased [None]
  - Electrolyte imbalance [None]

NARRATIVE: CASE EVENT DATE: 20220601
